FAERS Safety Report 9299328 (Version 2)
Quarter: 2013Q4

REPORT INFORMATION
  Report Type: Spontaneous
  Country: IT (occurrence: IT)
  Receive Date: 20130520
  Receipt Date: 20131025
  Transmission Date: 20140711
  Serious: Yes (Hospitalization, Other)
  Sender: FDA-Public Use
  Company Number: IT-009507513-1305ITA008533

PATIENT
  Age: 85 Year
  Sex: Female

DRUGS (7)
  1. FOSAVANCE [Suspect]
     Indication: OSTEOPOROSIS
     Dosage: 70 MG/5600 IU , QW
     Route: 048
     Dates: start: 20130223, end: 20130309
  2. PLAQUENIL [Suspect]
     Indication: SERONEGATIVE ARTHRITIS
     Dosage: 200 MG, QD
     Route: 048
     Dates: start: 20130221, end: 20130228
  3. BISOPROLOL FUMARATE [Concomitant]
     Dosage: 2.5 MG, UNK
     Route: 048
  4. HYDROCHLOROTHIAZIDE (+) LOSARTAN POTASSIUM [Concomitant]
     Dosage: 50 MG, UNK
     Route: 048
  5. LANSOPRAZOLE [Concomitant]
     Dosage: 30 UNK, UNK
  6. COUMADIN [Concomitant]
     Dosage: 1.25 MG, UNK
     Route: 048
  7. EUTIROX [Concomitant]
     Dosage: 25 MG, UNK
     Route: 048

REACTIONS (8)
  - Localised oedema [Recovering/Resolving]
  - Erythema [Recovering/Resolving]
  - Face oedema [Recovering/Resolving]
  - Rash pustular [Recovering/Resolving]
  - Skin exfoliation [Recovering/Resolving]
  - Drug reaction with eosinophilia and systemic symptoms [Recovering/Resolving]
  - Normochromic normocytic anaemia [Recovered/Resolved]
  - Thrombocytopenia [Recovered/Resolved]
